FAERS Safety Report 6124030-7 (Version None)
Quarter: 2009Q1

REPORT INFORMATION
  Report Type: 
  Country: None (occurrence: None)
  Receive Date: 20090313
  Receipt Date: 20081031
  Transmission Date: 20090719
  Serious: Yes (Other)
  Sender: FDA-Public Use
  Company Number: PAR_02411_2008

PATIENT
  Age: 61 Year
  Sex: Female
  Weight: 72.5755 kg

DRUGS (10)
  1. HYDRALAZINE HYDROCHLORIDE [Suspect]
     Indication: HYPERTENSION
     Dosage: (50 MG TID ORAL)
     Route: 048
     Dates: start: 20080901, end: 20081001
  2. PAROXETINE HCL [Concomitant]
  3. CARVEDILOL [Concomitant]
  4. DIGOXIN [Concomitant]
  5. FUROSEMIDE [Concomitant]
  6. WARFARIN SODIUM [Concomitant]
  7. IMDUR [Concomitant]
  8. CRESTOR [Concomitant]
  9. SPIRIVA [Concomitant]
  10. BROVANA [Concomitant]

REACTIONS (3)
  - BLOOD PRESSURE INCREASED [None]
  - DRUG INEFFECTIVE [None]
  - PRODUCT QUALITY ISSUE [None]
